FAERS Safety Report 7558057-5 (Version None)
Quarter: 2011Q2

REPORT INFORMATION
  Report Type: 
  Country: None (occurrence: None)
  Receive Date: 20110620
  Receipt Date: 20110207
  Transmission Date: 20111010
  Serious: No
  Sender: FDA-Public Use
  Company Number: US-ALLERGAN-1101722US

PATIENT
  Age: 72 Year
  Sex: Female

DRUGS (3)
  1. BLEPH-10 [Suspect]
     Indication: HORDEOLUM
     Dosage: 1 DROP IN THE LEFT EYE TWICE DAILY
     Route: 047
     Dates: start: 20110126
  2. AN UNSPECIFIED ANTI-ANXIETY [Concomitant]
  3. AN UNSPECIFIED ANTI-HYPERTENSIVE [Concomitant]

REACTIONS (1)
  - RASH ERYTHEMATOUS [None]
